FAERS Safety Report 5760025-0 (Version None)
Quarter: 2008Q2

REPORT INFORMATION
  Report Type: 
  Country: None (occurrence: None)
  Receive Date: 20080605
  Receipt Date: 20080529
  Transmission Date: 20081010
  Serious: Yes (Other)
  Sender: FDA-Public Use
  Company Number: US-ASTRAZENECA-2008UW10913

PATIENT
  Age: 90 Year
  Sex: Male

DRUGS (8)
  1. NEXIUM [Suspect]
     Indication: REFLUX OESOPHAGITIS
     Route: 048
     Dates: start: 20080301
  2. LEVOTHYROXINE SODIUM [Concomitant]
  3. ARICEPT [Concomitant]
  4. LISINOPRIL [Concomitant]
     Route: 048
  5. VITAMIN CAP [Concomitant]
  6. COLACE [Concomitant]
  7. IRON [Concomitant]
  8. CALTRATE [Concomitant]

REACTIONS (3)
  - ANAEMIA [None]
  - BLOOD THYROID STIMULATING HORMONE INCREASED [None]
  - CARDIAC PACEMAKER INSERTION [None]
